FAERS Safety Report 12907778 (Version 1)
Quarter: 2016Q4

REPORT INFORMATION
  Report Type: Spontaneous
  Country: RU (occurrence: RU)
  Receive Date: 20161103
  Receipt Date: 20161103
  Transmission Date: 20170207
  Serious: Yes (Other)
  Sender: FDA-Public Use
  Company Number: RU-ASTRAZENECA-2016SF13824

PATIENT
  Age: 58 Year
  Sex: Female
  Weight: 100 kg

DRUGS (6)
  1. BRILINTA [Suspect]
     Active Substance: TICAGRELOR
     Indication: ACUTE CORONARY SYNDROME
     Route: 048
     Dates: start: 201607
  2. EKVATOR [Concomitant]
  3. BISOPROLOL [Concomitant]
     Active Substance: BISOPROLOL
  4. ROSUVASTATIN. [Concomitant]
     Active Substance: ROSUVASTATIN
  5. CAPOTEN [Concomitant]
     Active Substance: CAPTOPRIL
  6. CARDIOMAGNYL [Concomitant]
     Active Substance: ASPIRIN\MAGNESIUM HYDROXIDE

REACTIONS (1)
  - Myopia [Not Recovered/Not Resolved]
